FAERS Safety Report 9736629 (Version 1)
Quarter: 2013Q4

REPORT INFORMATION
  Report Type: Spontaneous
  Country: US (occurrence: US)
  Receive Date: 20131206
  Receipt Date: 20131206
  Transmission Date: 20140711
  Serious: Yes (Other)
  Sender: FDA-Public Use
  Company Number: US-NOVOPROD-394168

PATIENT
  Age: 52 Year
  Sex: Female
  Weight: 74.83 kg

DRUGS (2)
  1. VICTOZA [Suspect]
     Indication: TYPE 2 DIABETES MELLITUS
     Route: 058
  2. LANTUS [Suspect]
     Indication: TYPE 2 DIABETES MELLITUS
     Dosage: 50 U, QD
     Route: 058
     Dates: start: 2013

REACTIONS (2)
  - Benign laryngeal neoplasm [Recovered/Resolved]
  - Neoplasm recurrence [Not Recovered/Not Resolved]
